FAERS Safety Report 4332379-3 (Version None)
Quarter: 2004Q2

REPORT INFORMATION
  Report Type: 
  Country: None (occurrence: None)
  Receive Date: 20040401
  Receipt Date: 20040330
  Transmission Date: 20050107
  Serious: Yes (Hospitalization)
  Sender: FDA-Public Use
  Company Number: BE-JNJFOC-20040303558

PATIENT
  Age: 10 Month
  Sex: Male
  Weight: 6.5 kg

DRUGS (3)
  1. CISAPRIDE (CISAPRIDE) SUSPENSION [Suspect]
     Indication: GASTROOESOPHAGEAL REFLUX DISEASE
     Dosage: 1.3 MG, 4 IN DAY
     Dates: start: 20040224, end: 20040228
  2. CISAPRIDE (CISAPRIDE) SUSPENSION [Suspect]
     Indication: GASTROOESOPHAGEAL REFLUX DISEASE
     Dosage: 1.3 MG, 4 IN DAY
     Dates: start: 20040303
  3. ZANTAC [Concomitant]

REACTIONS (2)
  - DEHYDRATION [None]
  - GASTROENTERITIS ROTAVIRUS [None]
